FAERS Safety Report 20014100 (Version 13)
Quarter: 2022Q2

REPORT INFORMATION
  Report Type: Spontaneous
  Country: CA (occurrence: CA)
  Receive Date: 20211029
  Receipt Date: 20220625
  Transmission Date: 20220721
  Serious: Yes (Other)
  Sender: FDA-Public Use
  Company Number: CA-CELLTRION INC.-2021CA014681

PATIENT

DRUGS (6)
  1. INFLECTRA [Suspect]
     Active Substance: INFLIXIMAB-DYYB
     Indication: Rheumatoid arthritis
     Dosage: 250 MG, AT 0, 2 AND 6 WEEKS, THE Q 8 WEEKS
     Route: 042
     Dates: start: 20210617, end: 20220320
  2. INFLECTRA [Suspect]
     Active Substance: INFLIXIMAB-DYYB
     Dosage: 250 MG AT 0, 2 AND 6 WEEKS, THE Q 8 WEEKS
     Route: 042
     Dates: start: 20210923
  3. INFLECTRA [Suspect]
     Active Substance: INFLIXIMAB-DYYB
     Dosage: 250 MG AT 0, 2 AND 6 WEEKS, THE Q 8 WEEKS
     Route: 042
     Dates: start: 20220123
  4. INFLECTRA [Suspect]
     Active Substance: INFLIXIMAB-DYYB
     Dosage: 250 MG AT 0, 2 AND 6 WEEKS, THE Q 8 WEEKS
     Route: 042
     Dates: start: 20220320
  5. INFLECTRA [Suspect]
     Active Substance: INFLIXIMAB-DYYB
     Dosage: 250 MG,0, 2 AND 6 WEEKS, THE Q 8 WEEKSON HOL
     Route: 042
     Dates: start: 20220320
  6. METHOTREXATE [Concomitant]
     Active Substance: METHOTREXATE
     Dosage: 15 MG, WEEKLY
     Route: 048

REACTIONS (17)
  - Hypertension [Recovering/Resolving]
  - Arthropathy [Unknown]
  - Drug ineffective [Unknown]
  - Arthralgia [Not Recovered/Not Resolved]
  - Cough [Not Recovered/Not Resolved]
  - Dizziness [Unknown]
  - Nasal congestion [Not Recovered/Not Resolved]
  - Oedema [Unknown]
  - Peripheral venous disease [Unknown]
  - Sinusitis [Recovering/Resolving]
  - Pain [Recovering/Resolving]
  - Fungal infection [Unknown]
  - Pain in extremity [Not Recovered/Not Resolved]
  - Deformity [Not Recovered/Not Resolved]
  - Neck pain [Not Recovered/Not Resolved]
  - Loss of personal independence in daily activities [Unknown]
  - Pain [Not Recovered/Not Resolved]

NARRATIVE: CASE EVENT DATE: 20210101
